FAERS Safety Report 8112288-4 (Version None)
Quarter: 2012Q1

REPORT INFORMATION
  Report Type: 
  Country: None (occurrence: None)
  Receive Date: 20120203
  Receipt Date: 20120203
  Transmission Date: 20120608
  Serious: Yes (Other)
  Sender: FDA-Public Use
  Company Number: None

PATIENT
  Age: 35 Year
  Sex: Male
  Weight: 115.66 kg

DRUGS (7)
  1. MORPHINE SULFATE [Suspect]
     Indication: INTERVERTEBRAL DISC PROTRUSION
     Dosage: 1 TABLET
     Route: 048
     Dates: start: 20120124, end: 20120202
  2. MORPHINE SULFATE [Suspect]
     Indication: RADICULOPATHY
     Dosage: 1 TABLET
     Route: 048
     Dates: start: 20120124, end: 20120202
  3. MORPHINE SULFATE [Suspect]
     Indication: SPINAL COLUMN STENOSIS
     Dosage: 1 TABLET
     Route: 048
     Dates: start: 20120124, end: 20120202
  4. MORPHINE SULFATE [Suspect]
     Indication: SPINAL OSTEOARTHRITIS
     Dosage: 1 TABLET
     Route: 048
     Dates: start: 20120124, end: 20120202
  5. CYMBALTA [Concomitant]
  6. SEROQUEL [Concomitant]
     Route: 048
  7. XANAX [Concomitant]

REACTIONS (8)
  - LETHARGY [None]
  - SLEEP DISORDER [None]
  - HEADACHE [None]
  - DIZZINESS [None]
  - SOMNOLENCE [None]
  - DIPLOPIA [None]
  - SEDATION [None]
  - VISION BLURRED [None]
